FAERS Safety Report 14601325 (Version 1)
Quarter: 2018Q1

REPORT INFORMATION
  Report Type: Report from Study
  Country: US (occurrence: US)
  Receive Date: 20180305
  Receipt Date: 20180305
  Transmission Date: 20180509
  Serious: No
  Sender: FDA-Public Use
  Company Number: US-AMGEN-USASL2018028883

PATIENT
  Sex: Female

DRUGS (1)
  1. ENBREL [Suspect]
     Active Substance: ETANERCEPT
     Indication: DYSHIDROTIC ECZEMA
     Dosage: 50 MG, 2 TIMES/WK
     Route: 058

REACTIONS (3)
  - Varicella [Not Recovered/Not Resolved]
  - Herpes zoster [Not Recovered/Not Resolved]
  - Off label use [Unknown]
